FAERS Safety Report 23652578 (Version 1)
Quarter: 2024Q1

REPORT INFORMATION
  Report Type: Spontaneous
  Country: CN (occurrence: CN)
  Receive Date: 20240320
  Receipt Date: 20240320
  Transmission Date: 20240410
  Serious: Yes (Hospitalization, Other)
  Sender: FDA-Public Use
  Company Number: CN-ASTELLAS-2024US008280

PATIENT
  Sex: Male

DRUGS (5)
  1. TACROLIMUS [Suspect]
     Active Substance: TACROLIMUS
     Indication: Kidney transplant rejection
     Route: 065
     Dates: start: 201811, end: 202105
  2. TACROLIMUS [Suspect]
     Active Substance: TACROLIMUS
     Dosage: 0.5 MG, DAILY
     Route: 065
     Dates: start: 202105, end: 202204
  3. TACROLIMUS [Suspect]
     Active Substance: TACROLIMUS
     Dosage: UNK UNK, UNKNOWN FREQ. (ADJUSTED TO 5 NG/ML)
     Route: 065
     Dates: start: 202204
  4. CELLCEPT [Concomitant]
     Active Substance: MYCOPHENOLATE MOFETIL
     Indication: Kidney transplant rejection
     Route: 065
     Dates: start: 201811
  5. PREDNISONE ACETATE [Concomitant]
     Active Substance: PREDNISONE ACETATE
     Indication: Kidney transplant rejection
     Route: 065
     Dates: start: 201811

REACTIONS (6)
  - Granuloma [Recovered/Resolved]
  - Diffuse large B-cell lymphoma [Recovering/Resolving]
  - Lymphoma [Recovering/Resolving]
  - Aspergillus infection [Unknown]
  - Tracheobronchitis [Unknown]
  - Herpes zoster [Unknown]

NARRATIVE: CASE EVENT DATE: 20210501
